FAERS Safety Report 5001397-4 (Version None)
Quarter: 2006Q2

REPORT INFORMATION
  Report Type: 
  Country: None (occurrence: None)
  Receive Date: 20060512
  Receipt Date: 20051208
  Transmission Date: 20061013
  Serious: Yes (Hospitalization, Other)
  Sender: FDA-Public Use
  Company Number: US-MERCK-0512USA01780

PATIENT
  Age: 72 Year
  Sex: Male
  Weight: 90 kg

DRUGS (1)
  1. VIOXX [Suspect]
     Indication: ARTHRITIS
     Route: 048
     Dates: start: 20000301, end: 20040201

REACTIONS (20)
  - ANGINA PECTORIS [None]
  - ARTHRALGIA [None]
  - BONE PAIN [None]
  - BREAST MASS [None]
  - BRONCHITIS [None]
  - CARDIAC DISORDER [None]
  - CATARACT OPERATION [None]
  - CHEST PAIN [None]
  - DIZZINESS [None]
  - DYSPNOEA [None]
  - FALL [None]
  - HEART RATE IRREGULAR [None]
  - HYPERTENSION [None]
  - OCULAR VASCULAR DISORDER [None]
  - OEDEMA PERIPHERAL [None]
  - PNEUMONIA [None]
  - REMOVAL OF FOREIGN BODY [None]
  - SHOULDER PAIN [None]
  - SKIN LACERATION [None]
  - VOMITING [None]
